FAERS Safety Report 9084990 (Version 1)
Quarter: 2013Q1

REPORT INFORMATION
  Report Type: Report from Study
  Country: US (occurrence: US)
  Receive Date: 20130129
  Receipt Date: 20130129
  Transmission Date: 20140127
  Serious: No
  Sender: FDA-Public Use
  Company Number: US-ABBOTT-12P-163-0948405-00

PATIENT
  Age: 28 Year
  Sex: Female
  Weight: 59.02 kg

DRUGS (3)
  1. HUMIRA 40 MG/0.8 ML PEN [Suspect]
     Indication: CROHN^S DISEASE
     Dosage: ONE TIME DOSE
     Route: 058
     Dates: start: 20120524, end: 20120524
  2. HUMIRA 40 MG/0.8 ML PEN [Suspect]
     Dosage: ONE TIME DOSE
     Route: 058
     Dates: start: 20120607, end: 20120607
  3. HUMIRA 40 MG/0.8 ML PEN [Suspect]
     Route: 058
     Dates: start: 20120621

REACTIONS (1)
  - Nasopharyngitis [Not Recovered/Not Resolved]
